FAERS Safety Report 4331132-4 (Version None)
Quarter: 2004Q1

REPORT INFORMATION
  Report Type: 
  Country: None (occurrence: None)
  Receive Date: 20040331
  Receipt Date: 20040318
  Transmission Date: 20041129
  Serious: Yes (Other)
  Sender: FDA-Public Use
  Company Number: HQWYE014422MAR04

PATIENT
  Age: 46 Year
  Sex: Male

DRUGS (9)
  1. MINOCYCLINE HCL [Suspect]
     Indication: ROSACEA
     Dosage: 100 MG 2X PER 1 DAY
  2. ATORVASTATIN [Concomitant]
  3. METFORMIN [Concomitant]
  4. RAMIPRIL [Concomitant]
  5. METOPROLOL [Concomitant]
  6. GLIPIZIDE [Concomitant]
  7. CHOLESTYRAMINE RESIN (COLESTYRAMINE) [Concomitant]
  8. LANSOPRAZOLE [Concomitant]
  9. INSULIN HUMAN [Concomitant]

REACTIONS (10)
  - ANTINUCLEAR ANTIBODY POSITIVE [None]
  - BONE MARROW DEPRESSION [None]
  - FIBROUS HISTIOCYTOMA [None]
  - HAEMORRHAGE [None]
  - HYPOCHROMIC ANAEMIA [None]
  - PITTING OEDEMA [None]
  - RASH ERYTHEMATOUS [None]
  - RASH MACULAR [None]
  - SCHAMBERG'S DISEASE [None]
  - THROMBOCYTOPENIC PURPURA [None]
